FAERS Safety Report 7406152-3 (Version None)
Quarter: 2011Q2

REPORT INFORMATION
  Report Type: 
  Country: None (occurrence: None)
  Receive Date: 20110411
  Receipt Date: 20101019
  Transmission Date: 20111010
  Serious: Yes (Other)
  Sender: FDA-Public Use
  Company Number: US-AMGEN-USASP2010000963

PATIENT
  Age: 43 Year
  Sex: Male
  Weight: 147 kg

DRUGS (2)
  1. VECTIBIX [Suspect]
     Indication: COLORECTAL CANCER METASTATIC
     Dosage: 600 MG, UNK
     Dates: start: 20100831
  2. IRINOTECAN [Concomitant]
     Dosage: UNK
     Dates: end: 20100101

REACTIONS (5)
  - DYSPEPSIA [None]
  - DIARRHOEA [None]
  - ACNE [None]
  - PULMONARY FIBROSIS [None]
  - FLATULENCE [None]
